FAERS Safety Report 14140562 (Version 1)
Quarter: 2017Q4

REPORT INFORMATION
  Report Type: Spontaneous
  Country: US (occurrence: None)
  Receive Date: 20171027
  Receipt Date: 20171027
  Transmission Date: 20180321
  Serious: Yes (Hospitalization)
  Sender: FDA-Public Use
  Company Number: None

PATIENT
  Age: 69 Year
  Sex: Female

DRUGS (6)
  1. BENADRYL [Concomitant]
     Active Substance: DIPHENHYDRAMINE HYDROCHLORIDE
  2. CELEBREX [Concomitant]
     Active Substance: CELECOXIB
  3. LETROZOLE. [Concomitant]
     Active Substance: LETROZOLE
  4. CLARITIN [Concomitant]
     Active Substance: LORATADINE
  5. IBRANCE [Suspect]
     Active Substance: PALBOCICLIB
     Indication: BREAST CANCER
     Dosage: 125 MG QD1-21 OF 28 BY MOUTH
     Route: 048
     Dates: start: 201707
  6. ASPIRIN. [Concomitant]
     Active Substance: ASPIRIN

REACTIONS (1)
  - Cellulitis [None]

NARRATIVE: CASE EVENT DATE: 20171022
